FAERS Safety Report 10167974 (Version 1)
Quarter: 2014Q2

REPORT INFORMATION
  Report Type: Spontaneous
  Country: CN (occurrence: CN)
  Receive Date: 20140512
  Receipt Date: 20140512
  Transmission Date: 20141212
  Serious: Yes (Congenital Anomaly)
  Sender: FDA-Public Use
  Company Number: CN-GLAXOSMITHKLINE-B0909446B

PATIENT
  Sex: 0

DRUGS (1)
  1. HEPTODIN [Suspect]
     Indication: HEPATITIS B
     Dosage: 1TAB PER DAY
     Route: 064

REACTIONS (2)
  - Heart disease congenital [Unknown]
  - Foetal exposure during pregnancy [Unknown]
